FAERS Safety Report 19824228 (Version 16)
Quarter: 2022Q4

REPORT INFORMATION
  Report Type: Spontaneous
  Country: JP (occurrence: JP)
  Receive Date: 20210913
  Receipt Date: 20221215
  Transmission Date: 20230112
  Serious: Yes (Hospitalization, Other)
  Sender: FDA-Public Use
  Company Number: JP-BRISTOL-MYERS SQUIBB COMPANY-BMS-2021-090681

PATIENT
  Age: 65 Year
  Sex: Female

DRUGS (5)
  1. YERVOY [Suspect]
     Active Substance: IPILIMUMAB
     Indication: Non-small cell lung cancer recurrent
     Dosage: UNK
     Route: 041
  2. OPDIVO [Suspect]
     Active Substance: NIVOLUMAB
     Indication: Non-small cell lung cancer recurrent
     Route: 041
  3. OPDIVO [Suspect]
     Active Substance: NIVOLUMAB
     Dosage: REASSUMED RECEIVING NIVOLUMAB MONOTHERAPY
     Route: 041
  4. COMIRNATY [Interacting]
     Active Substance: TOZINAMERAN
     Indication: COVID-19
     Dosage: UNK
  5. COMIRNATY [Interacting]
     Active Substance: TOZINAMERAN

REACTIONS (4)
  - Thyroid disorder [Unknown]
  - Diabetic ketoacidosis [Unknown]
  - Type 1 diabetes mellitus [Unknown]
  - Drug interaction [Unknown]
